FAERS Safety Report 23085064 (Version 2)
Quarter: 2023Q4

REPORT INFORMATION
  Report Type: Spontaneous
  Country: IT (occurrence: IT)
  Receive Date: 20231019
  Receipt Date: 20231031
  Transmission Date: 20240109
  Serious: Yes (Life-Threatening, Hospitalization, Other)
  Sender: FDA-Public Use
  Company Number: IT-TEVA-2023-IT-2935970

PATIENT
  Age: 8 Year
  Sex: Male

DRUGS (13)
  1. PREDNISONE [Suspect]
     Active Substance: PREDNISONE
     Indication: Chronic graft versus host disease in liver
     Route: 065
  2. PREDNISONE [Suspect]
     Active Substance: PREDNISONE
     Indication: Chronic graft versus host disease in skin
  3. TACROLIMUS [Suspect]
     Active Substance: TACROLIMUS
     Indication: Chronic graft versus host disease in liver
     Dosage: INITIAL DOSAGE NOT STATED
     Route: 065
  4. TACROLIMUS [Suspect]
     Active Substance: TACROLIMUS
     Indication: Immunosuppressant drug therapy
     Dosage: .15 MG/KG DAILY; ONCE A DAY
     Route: 065
  5. TACROLIMUS [Suspect]
     Active Substance: TACROLIMUS
     Indication: Chronic graft versus host disease in skin
  6. RUXOLITINIB [Suspect]
     Active Substance: RUXOLITINIB
     Indication: Chronic graft versus host disease in liver
     Dosage: INITIAL DOSAGE NOT STATED
     Route: 065
  7. RUXOLITINIB [Suspect]
     Active Substance: RUXOLITINIB
     Indication: Immunosuppressant drug therapy
     Dosage: 10 MILLIGRAM DAILY; 5 MG TWICE A DAY
     Route: 065
  8. RUXOLITINIB [Suspect]
     Active Substance: RUXOLITINIB
     Indication: Chronic graft versus host disease in skin
  9. METHYLPREDNISOLONE [Suspect]
     Active Substance: METHYLPREDNISOLONE
     Indication: Immunosuppressant drug therapy
     Dosage: 15 MILLIGRAM DAILY; LOW-DOSE; 0.5 MG/KG/DAY , ONCE A DAY
     Route: 065
  10. SIROLIMUS [Suspect]
     Active Substance: SIROLIMUS
     Indication: Immunosuppressant drug therapy
     Dosage: .5 MILLIGRAM DAILY; ONCE A DAY
     Route: 065
  11. IMMUNE GLOBULIN NOS [Suspect]
     Active Substance: IMMUNE GLOBULIN NOS
     Indication: Polyomavirus-associated nephropathy
     Route: 042
  12. CIDOFOVIR [Suspect]
     Active Substance: CIDOFOVIR
     Indication: Polyomavirus-associated nephropathy
     Dosage: SINGLE DOSE , 3 MG/KG
     Route: 065
  13. INSULIN NOS [Suspect]
     Active Substance: INSULIN NOS
     Indication: Hypertriglyceridaemia
     Dosage: CONTINUOUS INSULIN INFUSION , ADDITIONAL INFO: ROUTE: {INFUSION}
     Route: 050

REACTIONS (10)
  - Metabolic syndrome [Recovering/Resolving]
  - Acute kidney injury [Recovering/Resolving]
  - Polyomavirus-associated nephropathy [Recovering/Resolving]
  - Drug ineffective [Unknown]
  - Renal impairment [Recovering/Resolving]
  - Renovascular hypertension [Recovering/Resolving]
  - Pancreatitis acute [Recovering/Resolving]
  - Hypoglycaemia [Recovering/Resolving]
  - Hypertriglyceridaemia [Recovering/Resolving]
  - Renal failure [Recovering/Resolving]
